FAERS Safety Report 8347246-8 (Version None)
Quarter: 2012Q2

REPORT INFORMATION
  Report Type: 
  Country: None (occurrence: None)
  Receive Date: 20120509
  Receipt Date: 20120504
  Transmission Date: 20120825
  Serious: Yes (Other)
  Sender: FDA-Public Use
  Company Number: US-AMGEN-USASP2011011433

PATIENT
  Age: 72 Year
  Sex: Male
  Weight: 81.633 kg

DRUGS (2)
  1. TACLONEX [Concomitant]
     Dosage: UNK UNK, QD
  2. ENBREL [Suspect]
     Indication: PSORIASIS
     Dosage: 50 MG, QWK
     Route: 058
     Dates: start: 20101230, end: 20110131

REACTIONS (8)
  - INJECTION SITE URTICARIA [None]
  - DRUG INEFFECTIVE [None]
  - AMNESIA [None]
  - BACK PAIN [None]
  - UNRESPONSIVE TO STIMULI [None]
  - CENTRAL NERVOUS SYSTEM LESION [None]
  - APHASIA [None]
  - URTICARIA [None]
